FAERS Safety Report 8530004-9 (Version None)
Quarter: 2012Q3

REPORT INFORMATION
  Report Type: 
  Country: None (occurrence: None)
  Receive Date: 20120723
  Receipt Date: 20120716
  Transmission Date: 20120928
  Serious: Yes (Hospitalization, Other)
  Sender: FDA-Public Use
  Company Number: PHHY2012MX062184

PATIENT
  Sex: Female

DRUGS (2)
  1. ZOLEDRONOC ACID [Suspect]
     Indication: OSTEOPENIA
     Dosage: 5 MG, YEARLY
     Route: 042
     Dates: start: 20080717
  2. PIROXICAM [Concomitant]
     Indication: BONE PAIN
     Dosage: 1 DF, DAILY
     Dates: start: 20060101

REACTIONS (2)
  - ARTHROPATHY [None]
  - ARTHRALGIA [None]
